FAERS Safety Report 20326788 (Version 2)
Quarter: 2022Q1

REPORT INFORMATION
  Report Type: Spontaneous
  Country: PT (occurrence: PT)
  Receive Date: 20220112
  Receipt Date: 20220219
  Transmission Date: 20220423
  Serious: Yes (Disabling, Other)
  Sender: FDA-Public Use
  Company Number: PT-MLMSERVICE-20220105-3303272-1

PATIENT
  Age: 54 Year
  Sex: Male

DRUGS (2)
  1. ROSUVASTATIN CALCIUM [Suspect]
     Active Substance: ROSUVASTATIN CALCIUM
     Indication: Dyslipidaemia
  2. FINASTERIDE [Concomitant]
     Active Substance: FINASTERIDE
     Indication: Androgenetic alopecia

REACTIONS (3)
  - Arthralgia [Recovering/Resolving]
  - Tendon calcification [Recovering/Resolving]
  - Tendon disorder [Recovered/Resolved]
